FAERS Safety Report 10021169 (Version 1)
Quarter: 2014Q1

REPORT INFORMATION
  Report Type: Spontaneous
  Country: US (occurrence: US)
  Receive Date: 20140319
  Receipt Date: 20140319
  Transmission Date: 20141002
  Serious: No
  Sender: FDA-Public Use
  Company Number: US-PFIZER INC-2014076234

PATIENT
  Age: 56 Year
  Sex: Female

DRUGS (1)
  1. PREMPRO [Suspect]
     Indication: MENOPAUSAL SYMPTOMS
     Dosage: UNK

REACTIONS (6)
  - Chest discomfort [Unknown]
  - Chest discomfort [Unknown]
  - Head discomfort [Unknown]
  - Limb discomfort [Unknown]
  - Hypoaesthesia [Unknown]
  - Muscle spasms [Unknown]
